FAERS Safety Report 15821699 (Version 1)
Quarter: 2019Q1

REPORT INFORMATION
  Report Type: Spontaneous
  Country: JP (occurrence: JP)
  Receive Date: 20190114
  Receipt Date: 20190114
  Transmission Date: 20190417
  Serious: Yes (Hospitalization)
  Sender: FDA-Public Use
  Company Number: JP-PFIZER INC-2019012889

PATIENT
  Age: 31 Year
  Sex: Female
  Weight: 50.4 kg

DRUGS (5)
  1. HUSTAZOL [CLOPERASTINE FENDIZOATE] [Concomitant]
     Dosage: UNK
     Dates: start: 20171118
  2. SP TROCHES [Concomitant]
     Active Substance: DEQUALINIUM CHLORIDE
     Dosage: UNK
     Dates: start: 20171119
  3. CARBOCISTEINE [Concomitant]
     Active Substance: CARBOCYSTEINE
     Dosage: UNK
     Dates: start: 20171118
  4. ZITHROMAC 250MG [Suspect]
     Active Substance: AZITHROMYCIN DIHYDRATE
     Indication: PNEUMONIA
     Dosage: 500 MG, 1X/DAY
     Route: 048
     Dates: start: 20171118, end: 20171120
  5. CEFTRIAXONE [CEFTRIAXONE SODIUM] [Suspect]
     Active Substance: CEFTRIAXONE SODIUM
     Indication: PNEUMONIA
     Dosage: 2 G, 1X/DAY
     Route: 042
     Dates: start: 20171118, end: 20171120

REACTIONS (1)
  - Neutrophil count decreased [Recovered/Resolved]

NARRATIVE: CASE EVENT DATE: 20171120
